FAERS Safety Report 5764841-0 (Version None)
Quarter: 2008Q2

REPORT INFORMATION
  Report Type: 
  Country: None (occurrence: None)
  Receive Date: 20080609
  Receipt Date: 20080609
  Transmission Date: 20081010
  Serious: Yes (Hospitalization)
  Sender: FDA-Public Use
  Company Number: None

PATIENT
  Age: 55 Year
  Sex: Male

DRUGS (3)
  1. OXALIPLATIN [Suspect]
     Indication: OESOPHAGEAL CARCINOMA
     Dosage: 191.25 MG EVERY 2 WEEKS IV
     Route: 042
     Dates: start: 20070117, end: 20070214
  2. CAPECITABINE [Suspect]
     Indication: OESOPHAGEAL CARCINOMA
     Dosage: 2600 MG QD PO
     Route: 048
     Dates: start: 20070117, end: 20070226
  3. CAPECITABINE [Suspect]

REACTIONS (4)
  - ASPIRATION [None]
  - ATELECTASIS [None]
  - PERICARDIAL EFFUSION [None]
  - PLEURAL EFFUSION [None]
